FAERS Safety Report 7443051-5 (Version None)
Quarter: 2011Q2

REPORT INFORMATION
  Report Type: 
  Country: None (occurrence: None)
  Receive Date: 20110428
  Receipt Date: 20100304
  Transmission Date: 20111010
  Serious: No
  Sender: FDA-Public Use
  Company Number: US-MYLANLABS-2010S1003595

PATIENT
  Age: 72 Year
  Sex: Male
  Weight: 83.92 kg

DRUGS (2)
  1. PERFOROMIST [Suspect]
     Indication: EMPHYSEMA
     Route: 055
     Dates: start: 20100101
  2. IPRATROPIUM BROMIDE AND ALBUTEROL SULFATE [Suspect]
     Route: 055

REACTIONS (2)
  - FATIGUE [None]
  - SOMNOLENCE [None]
